FAERS Safety Report 4389243-3 (Version None)
Quarter: 2004Q2

REPORT INFORMATION
  Report Type: 
  Country: None (occurrence: None)
  Receive Date: 20040630
  Receipt Date: 20040615
  Transmission Date: 20050107
  Serious: Yes (Other)
  Sender: FDA-Public Use
  Company Number: 2004218938JP

PATIENT

DRUGS (2)
  1. PROVERA [Suspect]
     Dates: start: 20031101
  2. PREMARIN [Concomitant]

REACTIONS (1)
  - GASTRIC POLYPS [None]
